FAERS Safety Report 16256812 (Version 1)
Quarter: 2019Q2

REPORT INFORMATION
  Report Type: Spontaneous
  Country: US (occurrence: US)
  Receive Date: 20190430
  Receipt Date: 20190430
  Transmission Date: 20190711
  Serious: No
  Sender: FDA-Public Use
  Company Number: US-SUNOVION-2019SUN001643

PATIENT
  Sex: Male

DRUGS (1)
  1. LATUDA [Suspect]
     Active Substance: LURASIDONE HYDROCHLORIDE
     Dosage: UNKNOWN
     Route: 048

REACTIONS (2)
  - Muscle rigidity [Unknown]
  - Gait disturbance [Unknown]
